FAERS Safety Report 8501542-X (Version None)
Quarter: 2012Q3

REPORT INFORMATION
  Report Type: 
  Country: None (occurrence: None)
  Receive Date: 20120710
  Receipt Date: 20120704
  Transmission Date: 20120928
  Serious: Yes (Hospitalization, Other)
  Sender: FDA-Public Use
  Company Number: CO-PFIZER INC-2012161253

PATIENT
  Age: 69 Year
  Sex: Male

DRUGS (2)
  1. SINEMET [Concomitant]
     Indication: PARKINSONISM
     Dosage: UNK
     Route: 065
     Dates: start: 20060101
  2. LYRICA [Suspect]
     Indication: PAIN MANAGEMENT
     Dosage: 150 MG, UNK
     Route: 065
     Dates: start: 20070101

REACTIONS (1)
  - SPINAL DISORDER [None]
